FAERS Safety Report 5080341-8 (Version None)
Quarter: 2006Q3

REPORT INFORMATION
  Report Type: 
  Country: None (occurrence: None)
  Receive Date: 20060814
  Receipt Date: 20060814
  Transmission Date: 20061208
  Serious: No
  Sender: FDA-Public Use
  Company Number: None

PATIENT
  Age: 46 Year
  Sex: Female
  Weight: 48.9885 kg

DRUGS (1)
  1. METRONIDAZOLE [Suspect]
     Indication: VAGINITIS BACTERIAL
     Dosage: 1 TABLET 2 TIMES A DAY
     Dates: start: 20060808, end: 20060812

REACTIONS (7)
  - ARTHRALGIA [None]
  - DYSGEUSIA [None]
  - HEADACHE [None]
  - NAUSEA [None]
  - PYREXIA [None]
  - STOMACH DISCOMFORT [None]
  - VOMITING [None]
